FAERS Safety Report 9164015 (Version 1)
Quarter: 2013Q1

REPORT INFORMATION
  Report Type: Spontaneous
  Country: US (occurrence: US)
  Receive Date: 20130314
  Receipt Date: 20130314
  Transmission Date: 20140127
  Serious: Yes (Hospitalization)
  Sender: FDA-Public Use
  Company Number: US-BAYER-2013-028754

PATIENT
  Age: 17 Year
  Sex: Female

DRUGS (11)
  1. YASMIN [Suspect]
  2. LEXAPRO [Concomitant]
  3. ZYRTEC [CETIRIZINE HYDROCHLORIDE] [Concomitant]
  4. MINOCYCLINE [Concomitant]
  5. SULFAMETHOXAZOLE W/TRIMETHOPRIM [Concomitant]
  6. PHENAZOPYRIDINE [Concomitant]
  7. PROMETHAZINE [PROMETHAZINE] [Concomitant]
  8. CIPRO [Concomitant]
  9. FLAGYL [Concomitant]
  10. ASACOL [Concomitant]
  11. ROWASA [Concomitant]
     Route: 054

REACTIONS (4)
  - Pulmonary embolism [None]
  - Deep vein thrombosis [Recovered/Resolved]
  - Thrombophlebitis superficial [None]
  - Urinary bladder haemorrhage [Recovered/Resolved]
